FAERS Safety Report 7322483-X (Version None)
Quarter: 2011Q1

REPORT INFORMATION
  Report Type: 
  Country: None (occurrence: None)
  Receive Date: 20110301
  Receipt Date: 20100513
  Transmission Date: 20110831
  Serious: Yes (Hospitalization, Other)
  Sender: FDA-Public Use
  Company Number: US-BAYER-200936877NA

PATIENT
  Sex: Female
  Weight: 72.273 kg

DRUGS (5)
  1. YAZ [Suspect]
     Indication: CONTRACEPTION
     Dosage: 1 TABLET DAILY
     Route: 048
     Dates: start: 20070902, end: 20071009
  2. YAZ [Suspect]
     Indication: METRORRHAGIA
  3. FEXOFENADINE HCL [Concomitant]
     Indication: MULTIPLE ALLERGIES
     Dosage: DAILY DOSE 180 MG
     Route: 065
     Dates: start: 20070901
  4. YAZ [Suspect]
     Indication: MENSTRUATION IRREGULAR
  5. TRIAMTERENE [Concomitant]
     Indication: HYPERTENSION
     Dosage: DAILY DOSE 37.5 MG
     Route: 065
     Dates: start: 20070901

REACTIONS (8)
  - BONE PAIN [None]
  - DEEP VEIN THROMBOSIS [None]
  - VENOUS INSUFFICIENCY [None]
  - PAIN IN EXTREMITY [None]
  - INFLAMMATION [None]
  - DYSPNOEA [None]
  - CHEST PAIN [None]
  - PULMONARY EMBOLISM [None]
